FAERS Safety Report 5376626-8 (Version None)
Quarter: 2007Q2

REPORT INFORMATION
  Report Type: 
  Country: None (occurrence: None)
  Receive Date: 20070629
  Receipt Date: 20070622
  Transmission Date: 20071010
  Serious: Yes (Life-Threatening)
  Sender: FDA-Public Use
  Company Number: 2007-02013

PATIENT
  Age: 53 Year
  Sex: Male
  Weight: 72 kg

DRUGS (20)
  1. VELCADE [Suspect]
     Indication: MULTIPLE MYELOMA
     Dosage: 1.30 MG/M2, INTRAVENOUS
     Route: 042
     Dates: start: 20070417, end: 20070608
  2. CYCLOPHOSPHAMIDE [Suspect]
     Indication: MULTIPLE MYELOMA
     Dosage: 900.00 MG/M2, INTRAVENOUS
     Route: 042
     Dates: start: 20070417, end: 20070529
  3. DEXAMETHASONE [Suspect]
     Indication: MULTIPLE MYELOMA
  4. TETRAZEPAM (TETRAZEPAM) [Concomitant]
  5. MST (MORPHINE SULFATE) [Concomitant]
  6. NEXIUM [Concomitant]
  7. MOVICOL (SODIUM BICARBONATE, SODIUM CHLORIDE, MACROGOL, POTASSIUM CHLO [Concomitant]
  8. BISOPROLOL FUMARATE [Concomitant]
  9. PAMIDRONATE DISODIUM [Concomitant]
  10. VITAMIN D [Concomitant]
  11. CALCIUM (CALCIUM) [Concomitant]
  12. CATAPRESAN (CLONIDINE) AMPOULE [Concomitant]
  13. PANTOZOL (PANTOPRAZOLE SODIUM) [Concomitant]
  14. IBUPROFEN [Concomitant]
  15. RANITIDINE HYDROCHLORIDE (RANITIDINE HYDROCHLORIDE) AMPOULE [Concomitant]
  16. FENISTIL (DIMETINDENE MALEATE) AMPOULE [Concomitant]
  17. ZOFRAN [Concomitant]
  18. MESNA [Concomitant]
  19. ACYCLOVIR [Concomitant]
  20. NEUPOGEN [Concomitant]

REACTIONS (1)
  - NEUTROPENIA [None]
